FAERS Safety Report 20649103 (Version 1)
Quarter: 2022Q1

REPORT INFORMATION
  Report Type: Spontaneous
  Country: US (occurrence: None)
  Receive Date: 20220328
  Receipt Date: 20220328
  Transmission Date: 20220423
  Serious: Yes (Other)
  Sender: FDA-Public Use
  Company Number: None

PATIENT
  Age: 91 Year
  Sex: Female
  Weight: 50 kg

DRUGS (1)
  1. EVUSHELD [Suspect]
     Active Substance: CILGAVIMAB\TIXAGEVIMAB
     Indication: COVID-19 prophylaxis
     Dates: start: 20220107, end: 20220318

REACTIONS (5)
  - Musculoskeletal pain [None]
  - Pain [None]
  - Pain in extremity [None]
  - Injection site nerve damage [None]
  - Sciatic nerve injury [None]

NARRATIVE: CASE EVENT DATE: 20220318
